FAERS Safety Report 18023678 (Version 2)
Quarter: 2020Q3

REPORT INFORMATION
  Report Type: Spontaneous
  Country: US (occurrence: US)
  Receive Date: 20200715
  Receipt Date: 20200905
  Transmission Date: 20201103
  Serious: Yes (Life-Threatening, Hospitalization, Disabling, Other)
  Sender: FDA-Public Use
  Company Number: US-TORRENT-00010300

PATIENT
  Age: 74 Year
  Sex: Male
  Weight: 93 kg

DRUGS (11)
  1. ASPIRIN. [Concomitant]
     Active Substance: ASPIRIN
     Indication: CORONARY ARTERY DISEASE
  2. LISINOPRIL. [Concomitant]
     Active Substance: LISINOPRIL
     Indication: PRODUCT USED FOR UNKNOWN INDICATION
     Dosage: EVERY OTHER DAY
  3. DUTASTERIDE. [Concomitant]
     Active Substance: DUTASTERIDE
     Indication: PRODUCT USED FOR UNKNOWN INDICATION
  4. COLCHICINE. [Concomitant]
     Active Substance: COLCHICINE
     Indication: PRODUCT USED FOR UNKNOWN INDICATION
     Dosage: EVERY OTHER DAY
  5. TICAGRELOR. [Interacting]
     Active Substance: TICAGRELOR
     Indication: ACUTE CORONARY SYNDROME
     Dosage: TWICE DAILY
  6. EZETIMIBE. [Concomitant]
     Active Substance: EZETIMIBE
     Indication: HYPERLIPIDAEMIA
  7. METOPROLOL SUCCINATE. [Concomitant]
     Active Substance: METOPROLOL SUCCINATE
     Indication: PRODUCT USED FOR UNKNOWN INDICATION
  8. GABAPENTIN. [Concomitant]
     Active Substance: GABAPENTIN
     Indication: PRODUCT USED FOR UNKNOWN INDICATION
     Dosage: NIGHTLY
  9. ROSUVASTATIN. [Suspect]
     Active Substance: ROSUVASTATIN
     Indication: HYPERLIPIDAEMIA
     Dosage: UNKNOWN
  10. VERAPAMIL [Concomitant]
     Active Substance: VERAPAMIL HYDROCHLORIDE
     Indication: PRODUCT USED FOR UNKNOWN INDICATION
  11. TAMSULOSIN [Concomitant]
     Active Substance: TAMSULOSIN
     Indication: PRODUCT USED FOR UNKNOWN INDICATION

REACTIONS (6)
  - Acute kidney injury [Recovered/Resolved]
  - Fall [Recovered/Resolved]
  - Rhabdomyolysis [Recovered/Resolved]
  - Alanine aminotransferase increased [Recovered/Resolved]
  - Aspartate aminotransferase increased [Recovered/Resolved]
  - Drug interaction [Recovered/Resolved]
